FAERS Safety Report 10341556 (Version 1)
Quarter: 2014Q3

REPORT INFORMATION
  Report Type: Spontaneous
  Country: US (occurrence: None)
  Receive Date: 20140723
  Receipt Date: 20140723
  Transmission Date: 20150326
  Serious: Yes (Hospitalization)
  Sender: FDA-Public Use
  Company Number: UNT-2014-004012

PATIENT
  Age: 84 Year
  Sex: Female

DRUGS (4)
  1. REVATIO (SILDENAFIL CITRATE) [Concomitant]
  2. RIOCIGUAT [Concomitant]
     Active Substance: RIOCIGUAT
  3. COUMADIN /0001/4802/ (WARFARIN SODIUM) [Concomitant]
  4. REMODULIN [Suspect]
     Active Substance: TREPROSTINIL
     Indication: PULMONARY HYPERTENSION
     Route: 058
     Dates: start: 20130926

REACTIONS (1)
  - Pericardial effusion [None]
